FAERS Safety Report 10602557 (Version 1)
Quarter: 2014Q4

REPORT INFORMATION
  Report Type: Spontaneous
  Country: US (occurrence: US)
  Receive Date: 20141124
  Receipt Date: 20141124
  Transmission Date: 20150529
  Serious: Yes (Hospitalization, Other)
  Sender: FDA-Public Use
  Company Number: US-ELI_LILLY_AND_COMPANY-US201411007181

PATIENT
  Age: 66 Year
  Sex: Female

DRUGS (2)
  1. INSULIN HUMAN [Suspect]
     Active Substance: INSULIN HUMAN
     Indication: PRODUCT USED FOR UNKNOWN INDICATION
     Route: 065
  2. INSULIN HUMAN [Suspect]
     Active Substance: INSULIN HUMAN
     Indication: DIABETES MELLITUS
     Dosage: 35 U, BID
     Route: 065
     Dates: start: 1997

REACTIONS (11)
  - Pain in extremity [Unknown]
  - Neck pain [Unknown]
  - Blood glucose increased [Unknown]
  - Cough [Unknown]
  - Localised infection [Recovered/Resolved]
  - Headache [Unknown]
  - Drug ineffective [Unknown]
  - Suspected counterfeit product [Unknown]
  - Ear pain [Unknown]
  - Dizziness [Unknown]
  - Blood glucose decreased [Unknown]

NARRATIVE: CASE EVENT DATE: 201406
